FAERS Safety Report 10171517 (Version 1)
Quarter: 2014Q2

REPORT INFORMATION
  Report Type: Spontaneous
  Country: US (occurrence: US)
  Receive Date: 20140514
  Receipt Date: 20140514
  Transmission Date: 20141212
  Serious: No
  Sender: FDA-Public Use
  Company Number: US-PFIZER INC-2014128505

PATIENT
  Age: 73 Year
  Sex: Male

DRUGS (3)
  1. GABAPENTIN [Suspect]
     Indication: NEURALGIA
     Dosage: 300 MG, 1X/DAY
     Dates: start: 20140418, end: 20140505
  2. ALLEGRA [Concomitant]
     Indication: SEASONAL ALLERGY
  3. OMEPRAZOLE [Concomitant]
     Indication: ABDOMINAL DISCOMFORT
     Dosage: UNK

REACTIONS (4)
  - Hearing impaired [Unknown]
  - Drug ineffective [Unknown]
  - Myalgia [Not Recovered/Not Resolved]
  - Limb discomfort [Not Recovered/Not Resolved]
